FAERS Safety Report 23717164 (Version 1)
Quarter: 2024Q2

REPORT INFORMATION
  Report Type: Spontaneous
  Country: US (occurrence: None)
  Receive Date: 20240404
  Receipt Date: 20240404
  Transmission Date: 20240716
  Serious: No
  Sender: FDA-Public Use
  Company Number: None

PATIENT
  Age: 7 Month
  Sex: Female

DRUGS (1)
  1. PULMOZYME [Suspect]
     Active Substance: DORNASE ALFA
     Dosage: FREQUENCY : DAILY;?OTHER ROUTE : NEBULIZER;?
     Route: 050

REACTIONS (2)
  - Pancreatitis [None]
  - Nasopharyngitis [None]

NARRATIVE: CASE EVENT DATE: 20240201
